FAERS Safety Report 6188674-9 (Version None)
Quarter: 2009Q2

REPORT INFORMATION
  Report Type: 
  Country: None (occurrence: None)
  Receive Date: 20090513
  Receipt Date: 20090504
  Transmission Date: 20091009
  Serious: Yes (Other)
  Sender: FDA-Public Use
  Company Number: CA-WATSON-2009-03178

PATIENT
  Age: 52 Year
  Sex: Male

DRUGS (1)
  1. DEXAMETHASONE [Suspect]
     Indication: CORNEAL TRANSPLANT
     Dosage: 0.1%, 4 DROPS, DAILY
     Route: 047

REACTIONS (2)
  - INTRAOCULAR PRESSURE INCREASED [None]
  - KERATITIS [None]
